FAERS Safety Report 6879659-5 (Version None)
Quarter: 2010Q2

REPORT INFORMATION
  Report Type: 
  Country: None (occurrence: None)
  Receive Date: 20100625
  Receipt Date: 20091026
  Transmission Date: 20101027
  Serious: Yes (Other)
  Sender: FDA-Public Use
  Company Number: 2009252182

PATIENT
  Age: 69 Year
  Sex: Female

DRUGS (3)
  1. ESTRING [Suspect]
     Indication: VULVOVAGINAL DRYNESS
     Dosage: 2 MG, VAGINAL; 2MG VAGINAL
     Route: 067
     Dates: start: 20030101, end: 20090804
  2. ESTRING [Suspect]
     Indication: VULVOVAGINAL DRYNESS
     Dosage: 2 MG, VAGINAL; 2MG VAGINAL
     Route: 067
     Dates: start: 20090726, end: 20090804
  3. DIAZEPAM [Concomitant]

REACTIONS (4)
  - BREAST ENGORGEMENT [None]
  - BREAST ENLARGEMENT [None]
  - BREAST TENDERNESS [None]
  - THROMBOPHLEBITIS SUPERFICIAL [None]
